FAERS Safety Report 7933435-0 (Version None)
Quarter: 2011Q4

REPORT INFORMATION
  Report Type: 
  Country: None (occurrence: None)
  Receive Date: 20111122
  Receipt Date: 20111116
  Transmission Date: 20120403
  Serious: Yes (Other)
  Sender: FDA-Public Use
  Company Number: US-PFIZER INC-2011281564

PATIENT
  Sex: Male
  Weight: 73.469 kg

DRUGS (6)
  1. SEROQUEL [Concomitant]
     Indication: SLEEP DISORDER
     Dosage: UNK
  2. ACETYLSALICYLIC ACID [Concomitant]
     Indication: ANTICOAGULANT THERAPY
     Dosage: 81 MG,DAILY
  3. MULTIVITAMIN [Suspect]
     Indication: VITAMIN SUPPLEMENTATION
     Dosage: DAILY
     Dates: end: 20110101
  4. CARDURA [Suspect]
     Indication: PROSTATIC DISORDER
     Dosage: UNK
     Route: 048
  5. CALCIUM CITRATE/COLECALCIFEROL [Concomitant]
     Dosage: 630/500 MG/IU,DAILY
  6. TAMSULOSIN HYDROCHLORIDE [Concomitant]
     Indication: RELAXATION THERAPY
     Dosage: 2 MG, UNK

REACTIONS (4)
  - CYSTITIS [None]
  - NIGHTMARE [None]
  - DEPRESSION [None]
  - GENITAL BURNING SENSATION [None]
